FAERS Safety Report 12562370 (Version 3)
Quarter: 2016Q3

REPORT INFORMATION
  Report Type: Report from Study
  Country: AU (occurrence: AU)
  Receive Date: 20160715
  Receipt Date: 20160923
  Transmission Date: 20161109
  Serious: Yes (Hospitalization, Other)
  Sender: FDA-Public Use
  Company Number: AU-AMGEN-AUSSP2016088739

PATIENT
  Age: 57 Year
  Sex: Female

DRUGS (1)
  1. REPATHA [Suspect]
     Active Substance: EVOLOCUMAB
     Indication: TYPE IIA HYPERLIPIDAEMIA
     Dosage: 140 MG/ML, Q2WK
     Route: 065

REACTIONS (11)
  - Malaise [Unknown]
  - Carotid artery disease [Unknown]
  - Drug dose omission [Unknown]
  - Inappropriate schedule of drug administration [Unknown]
  - Confusional state [Unknown]
  - Feeling abnormal [Unknown]
  - Transient ischaemic attack [Unknown]
  - Headache [Unknown]
  - Dizziness [Unknown]
  - Mental impairment [Unknown]
  - Disorganised speech [Unknown]

NARRATIVE: CASE EVENT DATE: 201607
